FAERS Safety Report 7312112-3 (Version None)
Quarter: 2011Q1

REPORT INFORMATION
  Report Type: 
  Country: None (occurrence: None)
  Receive Date: 20110224
  Receipt Date: 20110211
  Transmission Date: 20110831
  Serious: Yes (Hospitalization)
  Sender: FDA-Public Use
  Company Number: PHHY2011ME11365

PATIENT
  Sex: Female
  Weight: 70 kg

DRUGS (4)
  1. CLOZAPINE SANDOZ [Suspect]
     Indication: MAJOR DEPRESSION
     Dosage: 75 MG, QD
     Route: 048
     Dates: start: 20070901
  2. EFTIL R [Concomitant]
     Dosage: 500 MG, UNK (1/2, 0, 1)
     Route: 048
     Dates: start: 20080101
  3. CLOZAPINE SANDOZ [Suspect]
     Dosage: 250 MG, QD
     Route: 048
     Dates: start: 20110124
  4. TRAZEM [Concomitant]
     Dosage: 5 MG, UNK (0,0,1)
     Dates: start: 20101201, end: 20110125

REACTIONS (8)
  - CONFUSIONAL STATE [None]
  - PETIT MAL EPILEPSY [None]
  - EPILEPSY [None]
  - BRADYPHRENIA [None]
  - SUICIDE ATTEMPT [None]
  - EXTRAPYRAMIDAL DISORDER [None]
  - GRAND MAL CONVULSION [None]
  - URINARY INCONTINENCE [None]
